FAERS Safety Report 12257674 (Version 2)
Quarter: 2016Q3

REPORT INFORMATION
  Report Type: Spontaneous
  Country: US (occurrence: US)
  Receive Date: 20160412
  Receipt Date: 20160803
  Transmission Date: 20161109
  Serious: No
  Sender: FDA-Public Use
  Company Number: US-PFIZER INC-2016166303

PATIENT
  Age: 47 Year
  Sex: Female
  Weight: 78.5 kg

DRUGS (17)
  1. LYRICA [Suspect]
     Active Substance: PREGABALIN
     Indication: NEUROPATHY PERIPHERAL
     Dosage: 75 MG, 2X/DAY
     Route: 048
  2. VISTARIL [Suspect]
     Active Substance: HYDROXYZINE PAMOATE
     Dosage: 25 MG, AS NEEDED (TAKE 1 EVERY 6-8 HOURS AS NEEDED)
  3. KLONOPIN [Concomitant]
     Active Substance: CLONAZEPAM
     Dosage: 0.5 MG, AS NEEDED (TAKE 1 AND 1/2 TWICE DAILY AS NEEDED )
  4. KEPPRA [Concomitant]
     Active Substance: LEVETIRACETAM
     Dosage: 1500 MG, 2X/DAY
  5. FIORINAL WITH CODEINE [Concomitant]
     Active Substance: ASPIRIN\BUTALBITAL\CAFFEINE\CODEINE PHOSPHATE
     Indication: PAIN
     Dosage: 30-50-325-40 MG CAP 1 EVERY 4-6 HOURS
  6. ACETAMINOPHEN W/OXYCODONE [Concomitant]
     Active Substance: ACETAMINOPHEN\OXYCODONE HYDROCHLORIDE
     Dosage: UNK, 4X/DAY (ACETAMINOPHEN 7.5-OXYCODON-7.5 MG)
  7. VERAPAMIL [Concomitant]
     Active Substance: VERAPAMIL HYDROCHLORIDE
     Dosage: 120 MG, DAILY (TAKE 1 BEDTIME)
  8. PRAZOSIN [Concomitant]
     Active Substance: PRAZOSIN
     Dosage: 1 MG, AS NEEDED
     Route: 048
  9. VOLTAREN [Concomitant]
     Active Substance: DICLOFENAC SODIUM
     Indication: PAIN
     Dosage: 1 %, AS NEEDED (AAA BID PRN)
  10. ACETAMINOPHEN W/HYDROCODONE [Concomitant]
     Active Substance: ACETAMINOPHEN\HYDROCODONE
     Dosage: UNK, (325 MG ACETAMINOPHEN; 10 MG HYDROCODONE) TAKE 1 AT BEDTIME
  11. PERCOCET [Concomitant]
     Active Substance: ACETAMINOPHEN\OXYCODONE HYDROCHLORIDE
     Dosage: UNK ACETAMINOPHEN 325 MG AND OXYCODONE HYDROCHLORIDE 5 MG., 4X/DAY
  12. LYRICA [Suspect]
     Active Substance: PREGABALIN
     Indication: MIGRAINE
  13. FLUOXETINE HCL [Concomitant]
     Active Substance: FLUOXETINE HYDROCHLORIDE
     Dosage: 20 MG, DAILY (TAKE 1 DAILY)
  14. TIZANIDINE HCL [Concomitant]
     Active Substance: TIZANIDINE HYDROCHLORIDE
     Indication: MUSCLE SPASMS
     Dosage: 4 MG, AS NEEDED (TAKE 1 EVERY 6-8 HOURS AS NEEDED)
  15. ALBUTEROL. [Concomitant]
     Active Substance: ALBUTEROL
     Dosage: 90 UG, UNK
  16. ATIVAN [Concomitant]
     Active Substance: LORAZEPAM
     Dosage: 2 MG, DAILY (TAKE 1 AT BED TIME)
  17. LITHIUM CARBONATE. [Concomitant]
     Active Substance: LITHIUM CARBONATE
     Dosage: 300 MG, 1X/DAY

REACTIONS (1)
  - Neuropathy peripheral [Unknown]
